FAERS Safety Report 11714746 (Version 1)
Quarter: 2015Q4

REPORT INFORMATION
  Report Type: Report from Study
  Country: US (occurrence: None)
  Receive Date: 20151109
  Receipt Date: 20151109
  Transmission Date: 20160304
  Serious: No
  Sender: FDA-Public Use
  Company Number: ADR-2014-01687

PATIENT
  Age: 44 Year
  Sex: Male

DRUGS (2)
  1. COMPOUNDED BACLOFEN INTRATHECAL 145MCG/M L [Suspect]
     Active Substance: BACLOFEN
     Indication: PAIN
     Dosage: 41.62MCG/DAY
  2. FENTANYL INTRATHECAL 200MCG/ML [Suspect]
     Active Substance: FENTANYL
     Dosage: 57.4MCG/DAY

REACTIONS (6)
  - Drooling [None]
  - Nasal dryness [None]
  - Sedation [None]
  - Dizziness [None]
  - Urinary retention [None]
  - Dry mouth [None]
